FAERS Safety Report 7177881-4 (Version None)
Quarter: 2010Q4

REPORT INFORMATION
  Report Type: 
  Country: None (occurrence: None)
  Receive Date: 20101220
  Receipt Date: 20101215
  Transmission Date: 20110411
  Serious: Yes (Hospitalization, Other)
  Sender: FDA-Public Use
  Company Number: NL-ABBOTT-10P-114-0689174-00

PATIENT
  Age: 71 Year
  Sex: Male

DRUGS (5)
  1. ERYTHROMYCIN [Suspect]
     Indication: PRODUCT USED FOR UNKNOWN INDICATION
     Route: 048
  2. BORTEZOMIB [Interacting]
     Indication: MULTIPLE MYELOMA
     Dosage: 1.3 MG/M**2 ON DAY 1,4,8,11
  3. BORTEZOMIB [Interacting]
     Dosage: REDUCED DOSE AT 50%
  4. ESOMEPRAZOLE [Concomitant]
     Indication: PRODUCT USED FOR UNKNOWN INDICATION
  5. PARACETAMOL [Concomitant]
     Indication: PRODUCT USED FOR UNKNOWN INDICATION

REACTIONS (5)
  - DRUG INTERACTION [None]
  - DRUG TOXICITY [None]
  - PYREXIA [None]
  - RENAL FAILURE [None]
  - TUBULOINTERSTITIAL NEPHRITIS [None]
